FAERS Safety Report 6152858-6 (Version None)
Quarter: 2009Q2

REPORT INFORMATION
  Report Type: 
  Country: None (occurrence: None)
  Receive Date: 20090413
  Receipt Date: 20090406
  Transmission Date: 20091009
  Serious: Yes (Death)
  Sender: FDA-Public Use
  Company Number: SE-BRISTOL-MYERS SQUIBB COMPANY-14579221

PATIENT
  Sex: Male

DRUGS (3)
  1. ABILIFY [Suspect]
  2. PAROXETINE HCL [Suspect]
  3. NOZINAN [Suspect]

REACTIONS (4)
  - DEATH [None]
  - DISTURBANCE IN SEXUAL AROUSAL [None]
  - MENTAL DISORDER [None]
  - PRODUCTIVE COUGH [None]
